FAERS Safety Report 10989573 (Version 2)
Quarter: 2015Q2

REPORT INFORMATION
  Report Type: Spontaneous
  Country: US (occurrence: US)
  Receive Date: 20150406
  Receipt Date: 20150507
  Transmission Date: 20150821
  Serious: Yes (Death, Hospitalization)
  Sender: FDA-Public Use
  Company Number: US-AMGEN-USASP2015031777

PATIENT
  Age: 89 Year
  Sex: Female

DRUGS (1)
  1. PROLIA [Suspect]
     Active Substance: DENOSUMAB
     Indication: OSTEOPOROSIS POSTMENOPAUSAL
     Dosage: UNK
     Route: 065
     Dates: start: 2008, end: 2014

REACTIONS (3)
  - Waldenstrom^s macroglobulinaemia [Fatal]
  - Pulmonary fibrosis [Fatal]
  - Pneumonia [Fatal]
